FAERS Safety Report 21466158 (Version 1)
Quarter: 2022Q4

REPORT INFORMATION
  Report Type: Spontaneous
  Country: US (occurrence: None)
  Receive Date: 20221015
  Receipt Date: 20221015
  Transmission Date: 20230113
  Serious: No
  Sender: FDA-Public Use
  Company Number: None

PATIENT
  Age: 76 Year
  Sex: Female
  Weight: 58.5 kg

DRUGS (11)
  1. GABAPENTIN [Suspect]
     Active Substance: GABAPENTIN
     Indication: Arthritis
     Dosage: OTHER QUANTITY : 360 CAPSULE(S);?FREQUENCY : 4 TIMES A DAY;?
     Route: 048
     Dates: start: 20221011, end: 20221013
  2. GABAPENTIN [Suspect]
     Active Substance: GABAPENTIN
     Indication: Burning sensation
  3. GABAPENTIN [Suspect]
     Active Substance: GABAPENTIN
     Indication: Pain
  4. GABAPENTIN [Concomitant]
     Active Substance: GABAPENTIN
  5. TRAMADOL [Concomitant]
     Active Substance: TRAMADOL
  6. CLONAZEPAM [Concomitant]
     Active Substance: CLONAZEPAM
  7. ATENOLOL [Concomitant]
     Active Substance: ATENOLOL
  8. ASPIRIN [Concomitant]
     Active Substance: ASPIRIN
  9. VITAMIN B12 [Concomitant]
     Active Substance: CYANOCOBALAMIN
  10. VITAMIN D [Concomitant]
     Active Substance: VITAMIN D NOS
  11. CALCIUM [Concomitant]
     Active Substance: CALCIUM

REACTIONS (5)
  - Product substitution issue [None]
  - Burning sensation [None]
  - Pain [None]
  - Sleep disorder [None]
  - Product physical issue [None]

NARRATIVE: CASE EVENT DATE: 20221014
